FAERS Safety Report 21053531 (Version 1)
Quarter: 2022Q3

REPORT INFORMATION
  Report Type: Spontaneous
  Country: None (occurrence: FR)
  Receive Date: 20220707
  Receipt Date: 20220707
  Transmission Date: 20221026
  Serious: Yes (Hospitalization)
  Sender: FDA-Public Use
  Company Number: FR-B.Braun Medical Inc.-2130618

PATIENT
  Age: 77 Year
  Sex: Male
  Weight: 72 kg

DRUGS (5)
  1. ACETAMINOPHEN [Suspect]
     Active Substance: ACETAMINOPHEN
  2. NEURONTIN [Suspect]
     Active Substance: GABAPENTIN
  3. OXYCONTIN [Suspect]
     Active Substance: OXYCODONE HYDROCHLORIDE
  4. METHOTREXATE [Suspect]
     Active Substance: METHOTREXATE
  5. LOVENOX [Suspect]
     Active Substance: ENOXAPARIN SODIUM

REACTIONS (2)
  - Liver disorder [Not Recovered/Not Resolved]
  - Condition aggravated [Not Recovered/Not Resolved]
